FAERS Safety Report 6419291-0 (Version None)
Quarter: 2009Q4

REPORT INFORMATION
  Report Type: 
  Country: None (occurrence: None)
  Receive Date: 20091029
  Receipt Date: 20091027
  Transmission Date: 20100525
  Serious: Yes (Hospitalization)
  Sender: FDA-Public Use
  Company Number: JP-BRISTOL-MYERS SQUIBB COMPANY-14812515

PATIENT
  Age: 42 Year
  Sex: Female

DRUGS (16)
  1. TAXOL [Suspect]
     Indication: BREAST CANCER
     Dosage: DAY 1, DAY 8, DAY 15, 29-JUL-2009:98MG/BODY,DAY15OF27TH COURSE:DISCONT;14OCT09-DAY1 OF 28TH COURSE
     Route: 041
     Dates: start: 20070921, end: 20091020
  2. AVASTIN [Suspect]
     Indication: BREAST CANCER
     Route: 041
     Dates: start: 20070921, end: 20091020
  3. DOXYCYCLINE HCL [Concomitant]
     Indication: ACNE
     Dosage: TABLET
     Route: 048
     Dates: start: 20080411
  4. FLAVINE ADENINE DINUCLEOTIDE [Concomitant]
     Indication: ACNE
     Dosage: TABLET
     Route: 048
     Dates: start: 20080411
  5. PYRIDOXAL PHOSPHATE [Concomitant]
     Indication: ACNE
     Dosage: TABLET
     Route: 048
     Dates: start: 20080411
  6. REBAMIPIDE [Concomitant]
     Indication: GASTRITIS PROPHYLAXIS
     Dosage: TABLET
     Route: 048
     Dates: start: 20080411
  7. CLINDAMYCIN PHOSPHATE [Concomitant]
     Indication: ACNE
     Route: 061
     Dates: start: 20071130
  8. NADIFLOXACIN [Concomitant]
     Indication: ACNE
     Dosage: LOTION
     Route: 061
     Dates: start: 20071130
  9. DIPHENHYDRAMINE HCL [Concomitant]
     Indication: ACNE
     Dosage: TOPICAL OINMENT - DIPHENHYDRAMINE,19DEC08 ONGOING
     Route: 048
     Dates: start: 20070921
  10. DIPHENHYDRAMINE HCL [Concomitant]
     Indication: PREMEDICATION
     Dosage: TOPICAL OINMENT - DIPHENHYDRAMINE,19DEC08 ONGOING
     Route: 048
     Dates: start: 20070921
  11. ZOLPIDEM TARTRATE [Concomitant]
     Indication: INSOMNIA
     Dosage: TABLET
     Route: 048
     Dates: start: 20080829
  12. DEXAMETHASONE SODIUM PHOSPHATE [Concomitant]
     Indication: PREMEDICATION
     Dosage: INJECTION
     Route: 042
     Dates: start: 20070921
  13. FAMOTIDINE [Concomitant]
     Indication: PREMEDICATION
     Dosage: INJECTION
     Route: 042
     Dates: start: 20070921
  14. IBUPROFEN [Concomitant]
     Indication: HEADACHE
     Dosage: DF=TABS
     Route: 048
     Dates: start: 20071011
  15. DEXAMETHASONE [Concomitant]
     Indication: STOMATITIS
     Dosage: OINMENT
     Route: 061
     Dates: start: 20090513
  16. AMMONIUM GLYCYRRHIZINATE [Concomitant]
     Indication: DERMATITIS ALLERGIC
     Dosage: WHEN CHEMOTHERAPY IS GIVEN
     Route: 042
     Dates: start: 20071113

REACTIONS (5)
  - HYPOAESTHESIA [None]
  - METASTASES TO KIDNEY [None]
  - METASTASES TO LUNG [None]
  - PUNCTURE SITE PAIN [None]
  - SENSORY LOSS [None]
